FAERS Safety Report 18338531 (Version 3)
Quarter: 2020Q4

REPORT INFORMATION
  Report Type: Spontaneous
  Country: CN (occurrence: CN)
  Receive Date: 20201002
  Receipt Date: 20201015
  Transmission Date: 20210113
  Serious: Yes (Death, Life-Threatening, Hospitalization, Other)
  Sender: FDA-Public Use
  Company Number: CN-PFIZER INC-2020377709

PATIENT
  Age: 40 Year
  Sex: Male

DRUGS (3)
  1. PREDNISONE. [Suspect]
     Active Substance: PREDNISONE
     Dosage: TAPERED BY 5 MG EVERY WEEK
     Route: 048
     Dates: start: 2016, end: 2016
  2. PREDNISONE. [Suspect]
     Active Substance: PREDNISONE
     Indication: DEMYELINATION
     Dosage: 60 MG, 1X/DAY
     Route: 048
     Dates: start: 20160519, end: 2016
  3. METHYLPREDNISOLONE. [Suspect]
     Active Substance: METHYLPREDNISOLONE
     Indication: DEMYELINATION
     Dosage: 500 MG, 1X/DAY
     Dates: start: 20160426, end: 2016

REACTIONS (5)
  - Neurocryptococcosis [Fatal]
  - Coma [Not Recovered/Not Resolved]
  - Cryptococcosis [Fatal]
  - Condition aggravated [Fatal]
  - Status epilepticus [Not Recovered/Not Resolved]

NARRATIVE: CASE EVENT DATE: 2016
